FAERS Safety Report 13565127 (Version 1)
Quarter: 2017Q2

REPORT INFORMATION
  Report Type: Report from Study
  Country: TW (occurrence: TW)
  Receive Date: 20170519
  Receipt Date: 20170519
  Transmission Date: 20170830
  Serious: Yes (Hospitalization)
  Sender: FDA-Public Use
  Company Number: PHHY2017TW070278

PATIENT
  Age: 70 Year
  Sex: Male
  Weight: 61.5 kg

DRUGS (1)
  1. TASIGNA [Suspect]
     Active Substance: NILOTINIB
     Indication: CHRONIC MYELOID LEUKAEMIA
     Dosage: 300 MG, UNK
     Route: 048
     Dates: start: 20160416

REACTIONS (8)
  - Malignant palate neoplasm [Not Recovered/Not Resolved]
  - Upper airway obstruction [Unknown]
  - Dyspnoea [Unknown]
  - Second primary malignancy [Not Recovered/Not Resolved]
  - Dysplasia [Unknown]
  - Pneumonia [Unknown]
  - Sensation of foreign body [Unknown]
  - Squamous cell carcinoma of the hypopharynx [Not Recovered/Not Resolved]

NARRATIVE: CASE EVENT DATE: 20170412
